FAERS Safety Report 14640571 (Version 2)
Quarter: 2018Q1

REPORT INFORMATION
  Report Type: Spontaneous
  Country: JP (occurrence: JP)
  Receive Date: 20180315
  Receipt Date: 20180328
  Transmission Date: 20180509
  Serious: Yes (Death)
  Sender: FDA-Public Use
  Company Number: JP-GLAXOSMITHKLINE-JP2018JPN041425

PATIENT
  Age: 46 Year
  Sex: Female

DRUGS (4)
  1. ONON [Concomitant]
     Active Substance: PRANLUKAST
     Dosage: UNK
  2. MEPOLIZUMAB [Suspect]
     Active Substance: MEPOLIZUMAB
     Indication: ASTHMA
     Dosage: UNK
     Route: 058
     Dates: start: 20180226, end: 20180226
  3. SYMBICORT [Concomitant]
     Active Substance: BUDESONIDE\FORMOTEROL FUMARATE DIHYDRATE
     Dosage: UNK
  4. IPD [Concomitant]
     Active Substance: SUPLATAST TOSILATE
     Dosage: UNK

REACTIONS (1)
  - Road traffic accident [Fatal]
